FAERS Safety Report 9240665 (Version 3)
Quarter: 2013Q2

REPORT INFORMATION
  Report Type: Spontaneous
  Country: FI (occurrence: FI)
  Receive Date: 20130418
  Receipt Date: 20130620
  Transmission Date: 20140414
  Serious: Yes (Hospitalization)
  Sender: FDA-Public Use
  Company Number: FI-AMGEN-FINSP2013025817

PATIENT
  Age: 69 Year
  Sex: Male

DRUGS (9)
  1. NEULASTA [Suspect]
     Indication: PROPHYLAXIS
     Dosage: 6 MG, QD
     Route: 058
     Dates: start: 20130328
  2. ETOPOSIDE [Concomitant]
     Indication: OESOPHAGEAL CANCER METASTATIC
     Dosage: UNK
  3. LEUCOVORIN                         /00566701/ [Concomitant]
     Indication: OESOPHAGEAL CANCER METASTATIC
     Dosage: UNK
  4. FLUOROURACIL [Concomitant]
     Indication: OESOPHAGEAL CANCER METASTATIC
     Dosage: UNK
  5. PARIET [Concomitant]
     Dosage: 20 MG PER OS DAILY
     Route: 048
  6. CALCICHEW D3 FORTE [Concomitant]
     Dosage: 1000 MG PER OS DAILY
     Route: 048
  7. BETOLVEX                           /00056201/ [Concomitant]
     Dosage: 1 MG, Q3MO
  8. DEXAMETASON                        /00016001/ [Concomitant]
     Dosage: 4.5 MG DAILY PER OS (1.5 MG TABLET)
     Route: 048
  9. OXYCONTIN [Concomitant]
     Dosage: 200 MG PER OS DAILY
     Route: 048

REACTIONS (2)
  - Neutropenic infection [Not Recovered/Not Resolved]
  - Drug ineffective [Unknown]
